FAERS Safety Report 7065037-5 (Version None)
Quarter: 2010Q4

REPORT INFORMATION
  Report Type: 
  Country: None (occurrence: None)
  Receive Date: 20101027
  Receipt Date: 20101018
  Transmission Date: 20110411
  Serious: Yes (Other)
  Sender: FDA-Public Use
  Company Number: JP-ALLERGAN-1013036US

PATIENT
  Age: 32 Year
  Sex: Female

DRUGS (8)
  1. EPINASTINE HYDROCHLORIDE [Suspect]
     Indication: DRY SKIN
     Dosage: 20 MG, QD
     Route: 048
     Dates: start: 20100908
  2. EPINASTINE HYDROCHLORIDE [Suspect]
     Indication: ATOPY
  3. HIRUDOID [Concomitant]
     Indication: DRY SKIN
     Route: 061
  4. HIRUDOID [Concomitant]
     Indication: ATOPY
  5. BETAMETHASONE [Concomitant]
     Indication: DRY SKIN
  6. BETAMETHASONE [Concomitant]
     Indication: ATOPY
  7. ANTEBATE [Concomitant]
     Indication: DRY SKIN
     Route: 061
  8. ANTEBATE [Concomitant]
     Indication: ATOPY

REACTIONS (1)
  - PLATELET COUNT DECREASED [None]
